FAERS Safety Report 14551739 (Version 3)
Quarter: 2018Q3

REPORT INFORMATION
  Report Type: Report from Study
  Country: RU (occurrence: RU)
  Receive Date: 20180220
  Receipt Date: 20180918
  Transmission Date: 20181010
  Serious: Yes (Life-Threatening, Hospitalization)
  Sender: FDA-Public Use
  Company Number: RU-ROCHE-2070387

PATIENT
  Age: 24 Year
  Sex: Female
  Weight: 64 kg

DRUGS (7)
  1. ZOLEDRONIC ACID [Concomitant]
     Active Substance: ZOLEDRONIC ACID
     Indication: METASTASES TO BONE
     Route: 042
     Dates: start: 20171115
  2. LYSOZYME [Concomitant]
     Active Substance: LYSOZYME
     Indication: COUGH
     Dosage: 1 TABLET
     Route: 048
     Dates: start: 20180104, end: 20180118
  3. COBIMETINIB. [Suspect]
     Active Substance: COBIMETINIB
     Indication: MALIGNANT MELANOMA
     Dosage: DATE OF MOST RECENT DOSE OF COBIMETINIB PRIOR TO SAE ONSET: 31/JAN/2018, 60 MG
     Route: 048
     Dates: start: 20171011
  4. AMBROXOL [Concomitant]
     Active Substance: AMBROXOL
     Indication: COUGH
     Route: 048
     Dates: start: 20180104, end: 20180118
  5. ATEZOLIZUMAB. [Suspect]
     Active Substance: ATEZOLIZUMAB
     Indication: MALIGNANT MELANOMA
     Dosage: DATE OF MOST RECENT DOSE OF BLINDED ATEZOLIZUMAB PRIOR TO AE ONSET 18/JAN/2018 (250 ML)
     Route: 042
     Dates: start: 20171108
  6. VEMURAFENIB. [Suspect]
     Active Substance: VEMURAFENIB
     Indication: MALIGNANT MELANOMA
     Dosage: DATE OF MOST RECENT DOSE OF VEMURAFENIB PRIOR TO SAE ONSET: 31/JAN/2018.
     Route: 048
     Dates: start: 20171011
  7. PYRIDOXINE [Concomitant]
     Active Substance: PYRIDOXINE
     Indication: COUGH
     Dosage: 1 TABLET
     Route: 048
     Dates: start: 20180104, end: 20180118

REACTIONS (1)
  - Uveitis [Recovered/Resolved]

NARRATIVE: CASE EVENT DATE: 20180201
